FAERS Safety Report 10548605 (Version 2)
Quarter: 2015Q1

REPORT INFORMATION
  Report Type: Report from Study
  Country: CA (occurrence: CA)
  Receive Date: 20141028
  Receipt Date: 20150223
  Transmission Date: 20150720
  Serious: Yes (Hospitalization, Other)
  Sender: FDA-Public Use
  Company Number: CA-SA-2014SA143379

PATIENT
  Age: 45 Year
  Sex: Female

DRUGS (6)
  1. PAMIDRONATE DISODIUM. [Concomitant]
     Active Substance: PAMIDRONATE DISODIUM
  2. TAXOTERE [Suspect]
     Active Substance: DOCETAXEL
     Indication: PRODUCT USED FOR UNKNOWN INDICATION
     Dosage: FORM: SOLUTION; THERAPY DURATION: 366 UNITS NOT SPECIFIED
     Route: 042
     Dates: start: 2008, end: 2009
  3. FASLODEX [Concomitant]
     Active Substance: FULVESTRANT
  4. KADCYLA [Suspect]
     Active Substance: ADO-TRASTUZUMAB EMTANSINE
     Indication: HER-2 POSITIVE BREAST CANCER
     Dosage: DOSAGE FORM: POWDER FOR SOLUTION; STRENGTH: 100 MG AND 160 MG
     Route: 042
     Dates: start: 20131112
  5. TRASTUZUMAB [Suspect]
     Active Substance: TRASTUZUMAB
     Indication: PRODUCT USED FOR UNKNOWN INDICATION
     Route: 065
     Dates: start: 2005, end: 2013
  6. TAXOTERE [Suspect]
     Active Substance: DOCETAXEL
     Indication: PRODUCT USED FOR UNKNOWN INDICATION
     Dosage: DURATION: 730( UNITS NOT SPECIFIED)
     Route: 065
     Dates: start: 2010, end: 2012

REACTIONS (10)
  - Drug ineffective [Unknown]
  - Ejection fraction decreased [Unknown]
  - Cough [Unknown]
  - Dyspnoea [Unknown]
  - Malignant neoplasm progression [Unknown]
  - Pericardial effusion [Not Recovered/Not Resolved]
  - Device occlusion [Unknown]
  - Laryngeal injury [Unknown]
  - Pulmonary oedema [Unknown]
  - Lung neoplasm malignant [Not Recovered/Not Resolved]

NARRATIVE: CASE EVENT DATE: 2005
